FAERS Safety Report 17333443 (Version 1)
Quarter: 2020Q1

REPORT INFORMATION
  Report Type: Spontaneous
  Country: US (occurrence: US)
  Receive Date: 20200128
  Receipt Date: 20200128
  Transmission Date: 20200409
  Serious: No
  Sender: FDA-Public Use
  Company Number: US-UNICHEM PHARMACEUTICALS (USA) INC-UCM201902-000044

PATIENT
  Sex: Female

DRUGS (1)
  1. MELOXICAM. [Suspect]
     Active Substance: MELOXICAM
     Dosage: SINCE 2 WEEKS

REACTIONS (2)
  - Pyrexia [Unknown]
  - Haematuria [Unknown]
